FAERS Safety Report 5025740-5 (Version None)
Quarter: 2006Q2

REPORT INFORMATION
  Report Type: 
  Country: None (occurrence: None)
  Receive Date: 20060427
  Receipt Date: 20051014
  Transmission Date: 20061013
  Serious: Yes (Other)
  Sender: FDA-Public Use
  Company Number: 2005135571

PATIENT
  Age: 45 Year
  Sex: Male
  Weight: 129.7287 kg

DRUGS (6)
  1. ZITHROMAX [Suspect]
     Indication: UPPER RESPIRATORY TRACT INFECTION
     Dosage: ORAL
     Route: 048
     Dates: start: 20050920
  2. TRIAMTERENE (TRIAMTERENE) [Concomitant]
  3. HYDROCHLOROTHIAZIDE [Concomitant]
  4. PROTONIX [Concomitant]
  5. NIFEREX (POLYSACCHARIDE-IRON COMPLEX) [Concomitant]
  6. VITAMIN C (VITAMIN C) [Concomitant]

REACTIONS (10)
  - ABDOMINAL DISCOMFORT [None]
  - DIARRHOEA [None]
  - DYSKINESIA [None]
  - DYSPHAGIA [None]
  - GASTROINTESTINAL MOTILITY DISORDER [None]
  - HYPERSENSITIVITY [None]
  - RASH [None]
  - SWOLLEN TONGUE [None]
  - TONGUE DISORDER [None]
  - VOMITING [None]
